FAERS Safety Report 6602684-6 (Version None)
Quarter: 2010Q1

REPORT INFORMATION
  Report Type: 
  Country: None (occurrence: None)
  Receive Date: 20100218
  Receipt Date: 20100127
  Transmission Date: 20100710
  Serious: Yes (Hospitalization, Other)
  Sender: FDA-Public Use
  Company Number: 2009AC000392

PATIENT
  Age: 43 Year
  Sex: Male

DRUGS (26)
  1. DIGOXIN [Suspect]
     Dosage: 125 MCG;QD;PO
     Route: 048
     Dates: start: 20070801
  2. LINICA [Concomitant]
  3. COREG [Concomitant]
  4. CAPTOPRIL [Concomitant]
  5. ALDACTONE [Concomitant]
  6. PROTONIX [Concomitant]
  7. LEVAQUIN [Concomitant]
  8. PREDNISONE [Concomitant]
  9. LISINOPRIL [Concomitant]
  10. LASIX [Concomitant]
  11. POTASSIUM CHLORIDE [Concomitant]
  12. XANAX [Concomitant]
  13. LEXAPRO [Concomitant]
  14. LYRICA [Concomitant]
  15. MS CONTIN [Concomitant]
  16. REGLAN [Concomitant]
  17. MUCINEX [Concomitant]
  18. ALBUTEROL [Concomitant]
  19. ATROVENT [Concomitant]
  20. KADIAN [Concomitant]
  21. HYDROCODONE [Concomitant]
  22. TRAMADOL HCL [Concomitant]
  23. VIAGRA [Concomitant]
  24. AMOXICILLIN [Concomitant]
  25. FUROSEMIDE [Concomitant]
  26. DIOVAN [Concomitant]

REACTIONS (16)
  - ABSCESS [None]
  - ANXIETY [None]
  - ARTHROPOD BITE [None]
  - BRONCHITIS [None]
  - BRONCHOPNEUMONIA [None]
  - CHRONIC OBSTRUCTIVE PULMONARY DISEASE [None]
  - DYSPNOEA [None]
  - ECONOMIC PROBLEM [None]
  - HYPOTENSION [None]
  - INTERSTITIAL LUNG DISEASE [None]
  - LUNG INFILTRATION [None]
  - MULTIPLE INJURIES [None]
  - OEDEMA PERIPHERAL [None]
  - STAPHYLOCOCCAL SKIN INFECTION [None]
  - SWELLING [None]
  - VENTRICULAR TACHYCARDIA [None]
